FAERS Safety Report 7966527-0 (Version None)
Quarter: 2011Q4

REPORT INFORMATION
  Report Type: 
  Country: None (occurrence: None)
  Receive Date: 20111208
  Receipt Date: 20111202
  Transmission Date: 20120403
  Serious: Yes (Other)
  Sender: FDA-Public Use
  Company Number: US-AMGEN-USASP2011061390

PATIENT
  Age: 35 Year
  Sex: Female

DRUGS (2)
  1. ENBREL [Suspect]
     Indication: RHEUMATOID ARTHRITIS
     Dosage: 50 MG, QWK
     Route: 058
     Dates: start: 20031101
  2. ENBREL [Suspect]
     Dates: start: 20031101

REACTIONS (4)
  - HYPERTENSION [None]
  - UTERINE LEIOMYOMA [None]
  - PROTEINURIA [None]
  - INJECTION SITE INJURY [None]
